FAERS Safety Report 11553416 (Version 2)
Quarter: 2016Q1

REPORT INFORMATION
  Report Type: Spontaneous
  Country: JP (occurrence: JP)
  Receive Date: 20150925
  Receipt Date: 20160229
  Transmission Date: 20160525
  Serious: Yes (Death)
  Sender: FDA-Public Use
  Company Number: JP-TEVA-595320ISR

PATIENT
  Age: 88 Year
  Sex: Female
  Weight: 30 kg

DRUGS (6)
  1. E-FEN BUCCAL [Suspect]
     Active Substance: FENTANYL CITRATE
     Indication: BREAKTHROUGH PAIN
     Dosage: 300 MICROGRAM DAILY;
     Route: 002
     Dates: start: 20150417, end: 20150417
  2. FENTANYL. [Concomitant]
     Active Substance: FENTANYL
     Dosage: 12.6 MILLIGRAM DAILY;
     Route: 062
     Dates: start: 20150503, end: 20150511
  3. E-FEN BUCCAL [Suspect]
     Active Substance: FENTANYL CITRATE
     Dosage: DAILY DOSE: 200 MICROG - 600 MICROG
     Route: 002
     Dates: start: 20150417, end: 20150426
  4. FENTANYL. [Concomitant]
     Active Substance: FENTANYL
     Indication: CANCER PAIN
     Dosage: 8.4 MILLIGRAM DAILY;
     Route: 062
     Dates: end: 20150502
  5. E-FEN BUCCAL [Suspect]
     Active Substance: FENTANYL CITRATE
     Route: 002
     Dates: start: 20150417, end: 20150508
  6. LENDORMIN D [Concomitant]
     Active Substance: BROTIZOLAM
     Dosage: .25 MILLIGRAM DAILY;
     Route: 048
     Dates: start: 20141104, end: 20150511

REACTIONS (1)
  - Colorectal cancer [Fatal]

NARRATIVE: CASE EVENT DATE: 20150511
